FAERS Safety Report 9277443 (Version 1)
Quarter: 2013Q2

REPORT INFORMATION
  Report Type: Spontaneous
  Country: US (occurrence: None)
  Receive Date: 20130503
  Receipt Date: 20130503
  Transmission Date: 20140414
  Serious: No
  Sender: FDA-Public Use
  Company Number: None

PATIENT
  Age: 10 Year
  Sex: Male
  Weight: 41.3 kg

DRUGS (2)
  1. CARBOPLATIN [Suspect]
  2. ETOPOSIDE (VP-16) [Suspect]

REACTIONS (1)
  - Neutrophil count decreased [None]
